FAERS Safety Report 16666835 (Version 1)
Quarter: 2019Q3

REPORT INFORMATION
  Report Type: Spontaneous
  Country: US (occurrence: US)
  Receive Date: 20190805
  Receipt Date: 20190805
  Transmission Date: 20191004
  Serious: No
  Sender: FDA-Public Use
  Company Number: US-ACCORD-072617

PATIENT
  Sex: Female
  Weight: 63.96 kg

DRUGS (1)
  1. ANASTROZOLE. [Suspect]
     Active Substance: ANASTROZOLE
     Indication: BREAST CANCER
     Dates: start: 20180608

REACTIONS (2)
  - Dry eye [Not Recovered/Not Resolved]
  - Condition aggravated [Not Recovered/Not Resolved]
